FAERS Safety Report 9934279 (Version 1)
Quarter: 2014Q1

REPORT INFORMATION
  Report Type: Report from Study
  Country: TR (occurrence: TR)
  Receive Date: 20140228
  Receipt Date: 20140228
  Transmission Date: 20141002
  Serious: Yes (Death)
  Sender: FDA-Public Use
  Company Number: TR-BAYER-2014-031521

PATIENT
  Age: 46 Year
  Sex: 0
  Weight: 76 kg

DRUGS (3)
  1. BETAFERON [Suspect]
  2. CORASPIN [Concomitant]
  3. FAMPRIDINE [Concomitant]

REACTIONS (1)
  - Myocardial infarction [Fatal]
